FAERS Safety Report 5036184-4 (Version None)
Quarter: 2006Q2

REPORT INFORMATION
  Report Type: 
  Country: None (occurrence: None)
  Receive Date: 20060531
  Receipt Date: 20050916
  Transmission Date: 20061013
  Serious: Yes (Other)
  Sender: FDA-Public Use
  Company Number: 2005087771

PATIENT
  Age: 63 Year
  Sex: Female
  Weight: 90.7194 kg

DRUGS (8)
  1. COLESTIPOL HCL [Suspect]
     Indication: IRRITABLE BOWEL SYNDROME
     Dosage: (1 GRAM, 2 TO 4 TIMES DAILY), ORAL
     Route: 048
  2. HUMULIN (INSULIN HUMAN, INSULIN ISOPHANE, HUMAN BIOSYNTHETIC) [Concomitant]
  3. METFORMIN [Concomitant]
  4. NEXIUM [Concomitant]
  5. VERAPAMIL - SLOW RELEASE (VERAPAMIL HYDROCHLORIDE) [Concomitant]
  6. HYZAAR [Concomitant]
  7. AMARYL [Concomitant]
  8. LIPITOR [Concomitant]

REACTIONS (3)
  - COUGH [None]
  - DEPRESSION [None]
  - HYPERSENSITIVITY [None]
